FAERS Safety Report 19475255 (Version 1)
Quarter: 2021Q2

REPORT INFORMATION
  Report Type: Spontaneous
  Country: US (occurrence: US)
  Receive Date: 20210629
  Receipt Date: 20210629
  Transmission Date: 20210717
  Serious: Yes (Death, Life-Threatening, Hospitalization, Other)
  Sender: FDA-Public Use
  Company Number: US-SA-2021SA196890

PATIENT
  Age: 81 Year
  Sex: Female
  Weight: 67 kg

DRUGS (6)
  1. LOVENOX [Suspect]
     Active Substance: ENOXAPARIN SODIUM
     Indication: THROMBOSIS PROPHYLAXIS
     Dosage: EMPIRICALLY INCREASED TO 60 MG, BID
  2. RED BLOOD CELLS [Concomitant]
     Active Substance: HUMAN RED BLOOD CELL
     Indication: HAEMOGLOBIN DECREASED
     Dosage: 2 U
  3. OXYGEN. [Concomitant]
     Active Substance: OXYGEN
     Indication: RESPIRATORY FAILURE
     Dosage: NASAL CANNULA
     Route: 045
  4. ACETYLSALICYLIC ACID [Suspect]
     Active Substance: ASPIRIN
     Indication: ANTIPLATELET THERAPY
     Dosage: 81 MG, QD AT HOME
  5. ACETYLSALICYLIC ACID [Suspect]
     Active Substance: ASPIRIN
     Indication: PROPHYLAXIS
     Dosage: 325 MG IN THE HOSPITAL
  6. LOVENOX [Suspect]
     Active Substance: ENOXAPARIN SODIUM
     Indication: ANTICOAGULANT THERAPY
     Dosage: ELEVATED PROPHYLACTIC DOSE OF 40 MG, BID

REACTIONS (9)
  - Coagulopathy [Fatal]
  - Multiple organ dysfunction syndrome [Fatal]
  - Arterial haemorrhage [Fatal]
  - Retroperitoneal haematoma [Fatal]
  - Shock [Fatal]
  - Haemoglobin decreased [Fatal]
  - Soft tissue haemorrhage [Fatal]
  - Condition aggravated [Fatal]
  - Hypoperfusion [Fatal]
